FAERS Safety Report 18674944 (Version 2)
Quarter: 2022Q1

REPORT INFORMATION
  Report Type: Spontaneous
  Country: US (occurrence: US)
  Receive Date: 20201229
  Receipt Date: 20220310
  Transmission Date: 20220424
  Serious: Yes (Other)
  Sender: FDA-Public Use
  Company Number: US-GLAXOSMITHKLINE-US2020GSK257248

PATIENT
  Sex: Female

DRUGS (7)
  1. RANITIDINE [Suspect]
     Active Substance: RANITIDINE
     Indication: Chronic gastritis
     Dosage: UNK UNK, QD
     Route: 065
     Dates: start: 199301, end: 202001
  2. ZANTAC [Suspect]
     Active Substance: RANITIDINE HYDROCHLORIDE
     Indication: Chronic gastritis
     Dosage: UNK UNK, QD
     Route: 065
     Dates: start: 199301, end: 202001
  3. ZANTAC [Suspect]
     Active Substance: RANITIDINE HYDROCHLORIDE
     Indication: Chronic gastritis
     Dosage: UNK UNK, QD
     Route: 065
     Dates: start: 199301, end: 202001
  4. RANITIDINE [Suspect]
     Active Substance: RANITIDINE
     Indication: Chronic gastritis
     Dosage: UNK UNK, QD
     Route: 065
     Dates: start: 199301, end: 202001
  5. RANITIDINE [Suspect]
     Active Substance: RANITIDINE
     Indication: Chronic gastritis
     Dosage: UNKNOWN AT THIS TIME BOTH
     Route: 065
     Dates: start: 199301, end: 202001
  6. RANITIDINE [Suspect]
     Active Substance: RANITIDINE
     Indication: Chronic gastritis
     Dosage: UNKNOWN AT THIS TIME BOTH
     Route: 065
     Dates: start: 199301, end: 202001
  7. ZANTAC [Suspect]
     Active Substance: RANITIDINE HYDROCHLORIDE
     Indication: Chronic gastritis
     Dosage: UNKNOWN AT THIS TIME BOTH
     Route: 065
     Dates: start: 199301, end: 202001

REACTIONS (1)
  - Thyroid cancer [Unknown]
